FAERS Safety Report 6182329-2 (Version None)
Quarter: 2009Q2

REPORT INFORMATION
  Report Type: 
  Country: None (occurrence: None)
  Receive Date: 20090505
  Receipt Date: 20090505
  Transmission Date: 20091009
  Serious: Yes (Hospitalization)
  Sender: FDA-Public Use
  Company Number: None

PATIENT
  Age: 52 Year
  Sex: Female
  Weight: 62 kg

DRUGS (3)
  1. MORPHINE [Suspect]
     Indication: ANALGESIA
     Dosage: 2 OR 4 MG IV BOLUS
     Route: 040
     Dates: start: 20090428, end: 20090429
  2. MORPHINE [Suspect]
     Indication: ANALGESIA
     Dosage: 15 MG PO
     Route: 048
  3. ATIVAN [Concomitant]

REACTIONS (5)
  - ATRIAL FIBRILLATION [None]
  - BLOOD PRESSURE SYSTOLIC INCREASED [None]
  - CONFUSIONAL STATE [None]
  - DISORIENTATION [None]
  - HEART RATE INCREASED [None]
